FAERS Safety Report 8379048-0 (Version None)
Quarter: 2012Q2

REPORT INFORMATION
  Report Type: 
  Country: None (occurrence: None)
  Receive Date: 20120523
  Receipt Date: 20120514
  Transmission Date: 20120825
  Serious: Yes (Other)
  Sender: FDA-Public Use
  Company Number: GB-ABBOTT-12P-167-0935178-00

PATIENT
  Age: 39 Year
  Sex: Male
  Weight: 56.6 kg

DRUGS (1)
  1. HUMIRA [Suspect]
     Indication: CROHN'S DISEASE
     Route: 058
     Dates: start: 20120402, end: 20120402

REACTIONS (4)
  - LIP SWELLING [None]
  - FATIGUE [None]
  - RASH MACULO-PAPULAR [None]
  - HEADACHE [None]
